FAERS Safety Report 7250129-8 (Version None)
Quarter: 2011Q1

REPORT INFORMATION
  Report Type: 
  Country: None (occurrence: None)
  Receive Date: 20110128
  Receipt Date: 20100922
  Transmission Date: 20110831
  Serious: Yes (Hospitalization, Other)
  Sender: FDA-Public Use
  Company Number: US-BAYER-200941881NA

PATIENT
  Sex: Female
  Weight: 68.182 kg

DRUGS (3)
  1. LORAZEPAM [Concomitant]
  2. YASMIN [Suspect]
     Indication: ARTHRALGIA
     Route: 048
     Dates: start: 20040501, end: 20050901
  3. KARIVA [Concomitant]

REACTIONS (7)
  - THROMBOPHLEBITIS [None]
  - LIMB DISCOMFORT [None]
  - DEEP VEIN THROMBOSIS [None]
  - OEDEMA PERIPHERAL [None]
  - POST THROMBOTIC SYNDROME [None]
  - VENOUS INSUFFICIENCY [None]
  - PAIN IN EXTREMITY [None]
